FAERS Safety Report 25358991 (Version 1)
Quarter: 2025Q2

REPORT INFORMATION
  Report Type: Spontaneous
  Country: BR (occurrence: BR)
  Receive Date: 20250526
  Receipt Date: 20250526
  Transmission Date: 20250716
  Serious: Yes (Other)
  Sender: ROCHE
  Company Number: BR-ROCHE-10000064091

PATIENT
  Sex: Male

DRUGS (1)
  1. EMICIZUMAB [Suspect]
     Active Substance: EMICIZUMAB
     Indication: Factor VIII deficiency
     Route: 065

REACTIONS (10)
  - Arthropathy [Unknown]
  - Joint range of motion decreased [Unknown]
  - Fall [Unknown]
  - Arthralgia [Unknown]
  - Oedema peripheral [Unknown]
  - Skin abrasion [Unknown]
  - Joint effusion [Unknown]
  - Pyrexia [Unknown]
  - Arthritis bacterial [Unknown]
  - Haemorrhage [Recovering/Resolving]
